FAERS Safety Report 20546671 (Version 1)
Quarter: 2022Q1

REPORT INFORMATION
  Report Type: Spontaneous
  Country: US (occurrence: US)
  Receive Date: 20220303
  Receipt Date: 20220303
  Transmission Date: 20220423
  Serious: Yes (Hospitalization, Disabling)
  Sender: FDA-Public Use
  Company Number: US-MYLANLABS-2022M1016520

PATIENT
  Age: 43 Year
  Sex: Female

DRUGS (6)
  1. PREDNISONE [Suspect]
     Active Substance: PREDNISONE
     Indication: Deafness
     Dosage: 60 MILLIGRAM, QD
     Route: 048
  2. PREDNISONE [Suspect]
     Active Substance: PREDNISONE
     Indication: Ear inflammation
  3. DEXAMETHASONE [Suspect]
     Active Substance: DEXAMETHASONE
     Indication: Deafness
     Dosage: RIGHT INTRATYMPANIC INJECTION
  4. DEXAMETHASONE [Suspect]
     Active Substance: DEXAMETHASONE
     Indication: Ear inflammation
  5. METHYLPREDNISOLONE [Suspect]
     Active Substance: METHYLPREDNISOLONE
     Indication: Deafness
     Dosage: 1000 MILLIGRAM, QD
     Route: 042
  6. METHYLPREDNISOLONE [Suspect]
     Active Substance: METHYLPREDNISOLONE
     Indication: Ear inflammation

REACTIONS (2)
  - Tympanic membrane perforation [Unknown]
  - Drug ineffective [Unknown]
